FAERS Safety Report 4284380-6 (Version None)
Quarter: 2004Q1

REPORT INFORMATION
  Report Type: 
  Country: None (occurrence: None)
  Receive Date: 20040130
  Receipt Date: 20040112
  Transmission Date: 20041129
  Serious: Yes (Death)
  Sender: FDA-Public Use
  Company Number: USA040156147

PATIENT
  Age: 63 Year
  Sex: Male

DRUGS (3)
  1. ZYPREXA [Suspect]
     Dosage: 30 MG/DAY
  2. EFFEXOR [Concomitant]
  3. REMERON [Concomitant]

REACTIONS (1)
  - INTENTIONAL OVERDOSE [None]
